FAERS Safety Report 6699548-9 (Version None)
Quarter: 2010Q2

REPORT INFORMATION
  Report Type: 
  Country: None (occurrence: None)
  Receive Date: 20100427
  Receipt Date: 20100427
  Transmission Date: 20101027
  Serious: Yes (Disabling)
  Sender: FDA-Public Use
  Company Number: None

PATIENT
  Age: 29 Year
  Sex: Female
  Weight: 50.8029 kg

DRUGS (1)
  1. BACTRIM [Suspect]
     Indication: STAPHYLOCOCCAL INFECTION
     Dosage: 800 MG 2 TIMES A DAY PO
     Route: 047
     Dates: start: 20100326, end: 20100408

REACTIONS (13)
  - DISCOMFORT [None]
  - DRUG HYPERSENSITIVITY [None]
  - ERYTHEMA [None]
  - EYE OEDEMA [None]
  - LIP SWELLING [None]
  - NASAL OEDEMA [None]
  - PERIORBITAL HAEMATOMA [None]
  - PRURITUS [None]
  - RASH MACULO-PAPULAR [None]
  - SKIN DISCOLOURATION [None]
  - SWELLING [None]
  - SWOLLEN TONGUE [None]
  - URTICARIA [None]
